FAERS Safety Report 6287101-0 (Version None)
Quarter: 2009Q3

REPORT INFORMATION
  Report Type: 
  Country: None (occurrence: None)
  Receive Date: 20090728
  Receipt Date: 20090727
  Transmission Date: 20100115
  Serious: Yes (Hospitalization, Other)
  Sender: FDA-Public Use
  Company Number: US-PFIZER INC-2009218940

PATIENT
  Sex: Male

DRUGS (1)
  1. HALCION [Suspect]

REACTIONS (3)
  - HALLUCINATION [None]
  - HOSPITALISATION [None]
  - WITHDRAWAL SYNDROME [None]
